FAERS Safety Report 7572318-5 (Version None)
Quarter: 2011Q2

REPORT INFORMATION
  Report Type: 
  Country: None (occurrence: None)
  Receive Date: 20110624
  Receipt Date: 20110620
  Transmission Date: 20111010
  Serious: Yes (Death)
  Sender: FDA-Public Use
  Company Number: PHHY2011MX54695

PATIENT
  Sex: Female

DRUGS (1)
  1. DIOVAN HCT [Suspect]
     Indication: HYPERTENSION
     Dosage: VALSARTAN 80MG AND HYDROCHLOROTHIAZIDE 12.5MG, 1 TABLET PER DAY
     Route: 048

REACTIONS (1)
  - DEATH [None]
